FAERS Safety Report 8918859 (Version 1)
Quarter: 2012Q4

REPORT INFORMATION
  Report Type: Spontaneous
  Country: US (occurrence: None)
  Receive Date: 20121115
  Receipt Date: 20121115
  Transmission Date: 20130627
  Serious: Yes (Hospitalization)
  Sender: FDA-Public Use
  Company Number: None

PATIENT
  Age: 80 Year
  Sex: Male
  Weight: 80.9 kg

DRUGS (2)
  1. CEFAZOLIN [Suspect]
     Indication: INFECTION
     Route: 042
     Dates: start: 20121105, end: 20121105
  2. ACETAMINOPHEN/OXYCODONE [Suspect]
     Indication: PAIN
     Dosage: 1 TAB  ONCE  PO
     Route: 048
     Dates: start: 20121106, end: 20121106

REACTIONS (5)
  - Rash morbilliform [None]
  - Dermatitis atopic [None]
  - Fungal infection [None]
  - Rash [None]
  - Post procedural complication [None]
